FAERS Safety Report 23415516 (Version 9)
Quarter: 2025Q2

REPORT INFORMATION
  Report Type: Report from Study
  Country: CO (occurrence: CO)
  Receive Date: 20240118
  Receipt Date: 20250502
  Transmission Date: 20250717
  Serious: Yes (Hospitalization)
  Sender: TAKEDA
  Company Number: CO-TAKEDA-2021TUS013400

PATIENT
  Age: 9 Year
  Sex: Male
  Weight: 28 kg

DRUGS (7)
  1. HUMAN IMMUNOGLOBULIN G\HYALURONIDASE RECOMBINANT HUMAN [Suspect]
     Active Substance: HUMAN IMMUNOGLOBULIN G\HYALURONIDASE (HUMAN RECOMBINANT)
     Indication: Primary immunodeficiency syndrome
     Dosage: 25 MILLIGRAM, MONTHLY
     Dates: start: 20210211
  2. HUMAN IMMUNOGLOBULIN G\HYALURONIDASE RECOMBINANT HUMAN [Suspect]
     Active Substance: HUMAN IMMUNOGLOBULIN G\HYALURONIDASE (HUMAN RECOMBINANT)
     Indication: Selective polysaccharide antibody deficiency
  3. HUMAN IMMUNOGLOBULIN G\HYALURONIDASE RECOMBINANT HUMAN [Suspect]
     Active Substance: HUMAN IMMUNOGLOBULIN G\HYALURONIDASE (HUMAN RECOMBINANT)
     Indication: Immunodeficiency
     Dosage: 25 GRAM, MONTHLY
  4. PEGFILGRASTIM [Concomitant]
     Active Substance: PEGFILGRASTIM
  5. Hiderax [Concomitant]
  6. CHILDRENS ADVIL [Concomitant]
     Active Substance: IBUPROFEN
  7. SODIUM CHLORIDE [Concomitant]
     Active Substance: SODIUM CHLORIDE

REACTIONS (19)
  - White blood cell count increased [Not Recovered/Not Resolved]
  - Infection [Not Recovered/Not Resolved]
  - Pain [Unknown]
  - Product dose omission issue [Not Recovered/Not Resolved]
  - Migraine [Unknown]
  - Headache [Not Recovered/Not Resolved]
  - Vomiting [Recovered/Resolved]
  - Viral infection [Unknown]
  - Feeling abnormal [Not Recovered/Not Resolved]
  - Product availability issue [Not Recovered/Not Resolved]
  - Insurance issue [Not Recovered/Not Resolved]
  - Weight increased [Not Recovered/Not Resolved]
  - Body height increased [Not Recovered/Not Resolved]
  - Treatment noncompliance [Not Recovered/Not Resolved]
  - Oropharyngeal plaque [Recovering/Resolving]
  - Weight decreased [Not Recovered/Not Resolved]
  - Cough [Not Recovered/Not Resolved]
  - Malaise [Not Recovered/Not Resolved]
  - Pyrexia [Recovering/Resolving]

NARRATIVE: CASE EVENT DATE: 20210213
